FAERS Safety Report 23990478 (Version 1)
Quarter: 2024Q2

REPORT INFORMATION
  Report Type: Spontaneous
  Country: DE (occurrence: DE)
  Receive Date: 20240619
  Receipt Date: 20240619
  Transmission Date: 20240715
  Serious: Yes (Death, Life-Threatening, Hospitalization, Other)
  Sender: FDA-Public Use
  Company Number: None

PATIENT
  Age: 68 Year
  Sex: Female
  Weight: 53 kg

DRUGS (34)
  1. OMEPRAZOLE [Suspect]
     Active Substance: DONEPEZIL HYDROCHLORIDE\OMEPRAZOLE\OMEPRAZOLE MAGNESIUM
     Indication: Product used for unknown indication
     Dosage: 80 MG, QD ALSO REPORTED AS 40 MG, BID
     Route: 065
  2. OMEPRAZOLE [Suspect]
     Active Substance: DONEPEZIL HYDROCHLORIDE\OMEPRAZOLE\OMEPRAZOLE MAGNESIUM
     Indication: Premedication
  3. RIVASTIGMINE [Suspect]
     Active Substance: RIVASTIGMINE
     Indication: Parkinson^s disease
     Dosage: 6 MG, QD (3 MG, BID)
     Route: 048
  4. RIVASTIGMINE [Suspect]
     Active Substance: RIVASTIGMINE
     Dosage: 6 MG, QD
     Route: 048
  5. RIVASTIGMINE [Suspect]
     Active Substance: RIVASTIGMINE
     Dosage: 1 MG, QD 3-1.5-1.5
     Route: 048
  6. VALPROIC ACID [Suspect]
     Active Substance: VALPROIC ACID
     Indication: Product used for unknown indication
     Dosage: 300 MG, BID
     Route: 048
  7. VALPROIC ACID [Suspect]
     Active Substance: VALPROIC ACID
     Dosage: 600 MG, QD
     Route: 048
  8. CLOZAPINE [Suspect]
     Active Substance: CLOZAPINE
     Indication: Product used for unknown indication
     Dosage: 0.5 DF, Q3W (25MG (0.5 TABLET AT 7+9+12+14+19 O^CLOCK)
     Route: 048
  9. CLOZAPINE [Suspect]
     Active Substance: CLOZAPINE
     Dosage: 225 MG, QD
     Route: 048
  10. CLOZAPINE [Suspect]
     Active Substance: CLOZAPINE
     Dosage: 62.5 MG, QD
     Route: 048
  11. CARBIDOPA\LEVODOPA [Suspect]
     Active Substance: CARBIDOPA\LEVODOPA
     Indication: Product used for unknown indication
     Dosage: 200 MG, QD
     Route: 048
  12. DOMPERIDONE [Suspect]
     Active Substance: DOMPERIDONE
     Indication: Product used for unknown indication
     Dosage: 10 MG, BID
     Route: 048
     Dates: end: 200901
  13. STALEVO [Suspect]
     Active Substance: CARBIDOPA\ENTACAPONE\LEVODOPA
     Indication: Product used for unknown indication
     Dosage: 6X100MG
     Route: 048
  14. STALEVO [Suspect]
     Active Substance: CARBIDOPA\ENTACAPONE\LEVODOPA
     Dosage: 600 MG, QD
     Route: 048
  15. STALEVO [Suspect]
     Active Substance: CARBIDOPA\ENTACAPONE\LEVODOPA
     Dosage: 50 MG, TID
  16. STALEVO [Suspect]
     Active Substance: CARBIDOPA\ENTACAPONE\LEVODOPA
     Route: 048
     Dates: start: 20090111
  17. STALEVO [Suspect]
     Active Substance: CARBIDOPA\ENTACAPONE\LEVODOPA
     Dosage: 6 DF, QD
     Route: 048
  18. PIPAMPERONE HYDROCHLORIDE [Suspect]
     Active Substance: PIPAMPERONE HYDROCHLORIDE
     Indication: Product used for unknown indication
     Dosage: 40 MG, QD
     Route: 048
  19. CLOMETHIAZOLE [Suspect]
     Active Substance: CLOMETHIAZOLE
     Indication: Product used for unknown indication
     Dosage: UNK UNK, QD (AS NECESSARY)
     Route: 048
     Dates: start: 2009
  20. CLOMETHIAZOLE [Suspect]
     Active Substance: CLOMETHIAZOLE
     Dosage: UNK, PRN
     Route: 048
  21. EXELON [Suspect]
     Active Substance: RIVASTIGMINE TARTRATE
     Indication: Product used for unknown indication
     Dosage: 6 MG, QD (3 MG, BID)
     Route: 065
  22. L DOPA [Suspect]
     Active Substance: LEVODOPA
     Indication: Premedication
     Dosage: 93.75 MG, QD (1/DAY)
     Route: 048
  23. CARBIDOPA [Suspect]
     Active Substance: CARBIDOPA
     Indication: Product used for unknown indication
     Dosage: 200 MG, QHS, DAILY DOSE: 200 MG MILLIGRAM(S) EVERY DAY
     Route: 048
  24. NOVALGIN (METAMIZOLE SODIUM) [Suspect]
     Active Substance: METAMIZOLE SODIUM
     Indication: Product used for unknown indication
     Route: 042
  25. LACTULOSE [Concomitant]
     Active Substance: LACTULOSE
     Indication: Product used for unknown indication
     Dosage: 20 ML, QD
  26. MOVICOL [Concomitant]
     Active Substance: POLYETHYLENE GLYCOL 3350\POTASSIUM CHLORIDE\SODIUM BICARBONATE\SODIUM CHLORIDE
     Indication: Product used for unknown indication
     Dosage: 1 DF, QD
  27. POTASSIUM CHLORIDE [Concomitant]
     Active Substance: POTASSIUM CHLORIDE
     Indication: Product used for unknown indication
     Route: 065
  28. CARBIDOPA\LEVODOPA [Concomitant]
     Active Substance: CARBIDOPA\LEVODOPA
     Indication: Product used for unknown indication
     Dosage: 250 MG, QD
  29. TRAMADOL [Concomitant]
     Active Substance: TRAMADOL\TRAMADOL HYDROCHLORIDE
     Indication: Product used for unknown indication
     Route: 042
  30. NEOSTIGMINE METHYLSULFATE [Concomitant]
     Indication: Product used for unknown indication
  31. VALPROIC ACID [Concomitant]
     Active Substance: VALPROIC ACID
     Indication: Product used for unknown indication
     Dosage: 600 MG, QD
  32. METOCLOPRAMIDE [Concomitant]
     Active Substance: METOCLOPRAMIDE
     Indication: Product used for unknown indication
     Route: 042
  33. METAMIZOLE [Concomitant]
     Active Substance: METAMIZOLE
     Indication: Product used for unknown indication
     Dosage: 20 DROPS, QID (4/DAY)
  34. CARBIDOPA\LEVODOPA [Concomitant]
     Active Substance: CARBIDOPA\LEVODOPA
     Indication: Product used for unknown indication
     Dosage: 25 MG, TID (3/DAY)

REACTIONS (14)
  - Subileus [Fatal]
  - Pancreatitis [Fatal]
  - Faecaloma [Fatal]
  - Ileus [Fatal]
  - Bladder disorder [Fatal]
  - Gastrointestinal sounds abnormal [Fatal]
  - Abdominal tenderness [Fatal]
  - White blood cell count increased [Fatal]
  - Abdominal distension [Fatal]
  - Dementia [Fatal]
  - Abdominal pain [Fatal]
  - Nausea [Fatal]
  - Vascular encephalopathy [Fatal]
  - Vascular encephalopathy [Fatal]

NARRATIVE: CASE EVENT DATE: 20090101
